FAERS Safety Report 18183978 (Version 1)
Quarter: 2020Q3

REPORT INFORMATION
  Report Type: Spontaneous
  Country: US (occurrence: US)
  Receive Date: 20200823
  Receipt Date: 20200823
  Transmission Date: 20201103
  Serious: Yes (Other)
  Sender: FDA-Public Use
  Company Number: US-VERO BIOTECH-2088936

PATIENT
  Age: 58 Year
  Sex: Male

DRUGS (2)
  1. DEXAMETHASONE. [Concomitant]
     Active Substance: DEXAMETHASONE
     Route: 065
  2. GENOSYL [Suspect]
     Active Substance: NITRIC OXIDE
     Indication: COVID-19
     Route: 055
     Dates: start: 20200726, end: 20200803

REACTIONS (5)
  - Hypoxia [Unknown]
  - Anxiety [Unknown]
  - Device failure [Unknown]
  - Dyspnoea [Unknown]
  - Underdose [Recovered/Resolved]

NARRATIVE: CASE EVENT DATE: 20200727
